FAERS Safety Report 23069247 (Version 1)
Quarter: 2023Q4

REPORT INFORMATION
  Report Type: Report from Study
  Country: US (occurrence: None)
  Receive Date: 20231016
  Receipt Date: 20231016
  Transmission Date: 20240110
  Serious: Yes (Death)
  Sender: FDA-Public Use
  Company Number: 2023A231754

PATIENT
  Sex: Male

DRUGS (2)
  1. BREZTRI [Suspect]
     Active Substance: BUDESONIDE\FORMOTEROL\GLYCOPYRROLATE
     Dosage: 2 PUFFS BY MOUTH TWICE DAILY
     Route: 055
  2. DALIRESP [Suspect]
     Active Substance: ROFLUMILAST
     Dosage: 1 TABLET BY MOUTH EVERY DAY
     Route: 048

REACTIONS (1)
  - Death [Fatal]
